FAERS Safety Report 9543907 (Version 1)
Quarter: 2013Q3

REPORT INFORMATION
  Report Type: Not Available
  Country: GB (occurrence: GB)
  Receive Date: 20130923
  Receipt Date: 20130923
  Transmission Date: 20140515
  Serious: Yes (Other)
  Sender: FDA-Public Use
  Company Number: GB-PURDUE-USA-2013-0106443

PATIENT
  Age: 19 Year
  Sex: Female
  Weight: 46 kg

DRUGS (1)
  1. TRAMADOL (SIMILAR TO NDA 21-745) [Suspect]
     Indication: CYST
     Dosage: 100 MG, DAILY
     Dates: start: 20130812, end: 20130819

REACTIONS (2)
  - Hallucination [Recovered/Resolved]
  - Self-injurious ideation [Recovered/Resolved]
